FAERS Safety Report 20673397 (Version 9)
Quarter: 2023Q4

REPORT INFORMATION
  Report Type: Spontaneous
  Country: US (occurrence: US)
  Receive Date: 20220405
  Receipt Date: 20231211
  Transmission Date: 20240110
  Serious: Yes (Hospitalization, Other)
  Sender: FDA-Public Use
  Company Number: US-PFIZER INC-202200483687

PATIENT
  Age: 76 Year
  Sex: Female
  Weight: 52.16 kg

DRUGS (4)
  1. IBRANCE [Suspect]
     Active Substance: PALBOCICLIB
     Indication: Breast cancer metastatic
     Dosage: UNK
     Dates: start: 2022
  2. IBRANCE [Suspect]
     Active Substance: PALBOCICLIB
     Dosage: 125 MG
     Dates: end: 20220502
  3. IBRANCE [Suspect]
     Active Substance: PALBOCICLIB
     Dosage: 75 MG, CYCLIC (BY MOUTH DAILY FOR 21 DAYS WITH OR WITHOUT FOOD ON DAYS 1-21 EVERY 28 DAYS)
     Route: 048
     Dates: start: 20221229, end: 20230119
  4. IBRANCE [Suspect]
     Active Substance: PALBOCICLIB
     Dosage: 75 MG, CYCLIC [TAKE 1 TABLET (75 MG TOTAL) BY MOUTH DAILY, ON DAYS 1-14 EVERY 28 DAYS]
     Route: 048

REACTIONS (17)
  - Pulmonary thrombosis [Unknown]
  - Epistaxis [Unknown]
  - Cough [Unknown]
  - Fatigue [Unknown]
  - Pulmonary embolism [Unknown]
  - Neoplasm progression [Unknown]
  - Night sweats [Unknown]
  - Nausea [Unknown]
  - Vomiting [Unknown]
  - Oropharyngeal pain [Unknown]
  - Dysphonia [Unknown]
  - Productive cough [Unknown]
  - Dyspnoea [Unknown]
  - Blood disorder [Unknown]
  - Malaise [Unknown]
  - Off label use [Unknown]
  - Product use issue [Unknown]

NARRATIVE: CASE EVENT DATE: 20220101
